FAERS Safety Report 8378439-1 (Version None)
Quarter: 2012Q2

REPORT INFORMATION
  Report Type: 
  Country: None (occurrence: None)
  Receive Date: 20120522
  Receipt Date: 20120306
  Transmission Date: 20120825
  Serious: No
  Sender: FDA-Public Use
  Company Number: US-ASTRAZENECA-2012SE15368

PATIENT
  Sex: Male

DRUGS (5)
  1. PRILOSEC [Suspect]
     Indication: GASTROOESOPHAGEAL REFLUX DISEASE
     Route: 048
  2. PRILOSEC [Suspect]
     Dosage: 10 MG
     Route: 048
  3. TRAZODONE HCL [Suspect]
     Route: 065
  4. DIAZEPAM [Suspect]
     Route: 065
  5. NAPROXEN (ALEVE) [Concomitant]

REACTIONS (3)
  - COGNITIVE DISORDER [None]
  - DISTURBANCE IN ATTENTION [None]
  - OFF LABEL USE [None]
